FAERS Safety Report 23479042 (Version 1)
Quarter: 2024Q1

REPORT INFORMATION
  Report Type: Spontaneous
  Country: US (occurrence: US)
  Receive Date: 20240205
  Receipt Date: 20240205
  Transmission Date: 20240410
  Serious: Yes (Hospitalization, Other)
  Sender: FDA-Public Use
  Company Number: US-BRISTOL-MYERS SQUIBB COMPANY-2024-017728

PATIENT
  Age: 69 Year
  Sex: Female
  Weight: 58.97 kg

DRUGS (3)
  1. OPDIVO [Suspect]
     Active Substance: NIVOLUMAB
     Indication: Metastatic ocular melanoma
     Route: 042
     Dates: start: 202310
  2. YERVOY [Suspect]
     Active Substance: IPILIMUMAB
     Indication: Metastatic ocular melanoma
     Route: 042
     Dates: start: 202310
  3. SYNTHROID [Concomitant]
     Active Substance: LEVOTHYROXINE SODIUM
     Indication: Product used for unknown indication

REACTIONS (5)
  - Dyspnoea [Not Recovered/Not Resolved]
  - Chest pain [Unknown]
  - Loss of consciousness [Unknown]
  - Asthenia [Unknown]
  - Pulmonary oedema [Unknown]

NARRATIVE: CASE EVENT DATE: 20231101
